FAERS Safety Report 14282536 (Version 1)
Quarter: 2017Q4

REPORT INFORMATION
  Report Type: Report from Study
  Country: BE (occurrence: BE)
  Receive Date: 20171213
  Receipt Date: 20171213
  Transmission Date: 20180321
  Serious: No
  Sender: FDA-Public Use
  Company Number: BE-ALLERGAN-1768802US

PATIENT
  Age: 28 Year
  Sex: Male
  Weight: 60.45 kg

DRUGS (10)
  1. BLINDED BRAZIKUMAB 240MG (TBD) [Suspect]
     Active Substance: BRAZIKUMAB
     Indication: CROHN^S DISEASE
     Dosage: UNK
     Dates: start: 20170322, end: 20170905
  2. BLINDED BRAZIKUMAB 120MG (TBD) [Suspect]
     Active Substance: BRAZIKUMAB
     Indication: CROHN^S DISEASE
     Dosage: UNK
     Dates: start: 20170322, end: 20170905
  3. IMURAN [Concomitant]
     Active Substance: AZATHIOPRINE
     Indication: CROHN^S DISEASE
     Dosage: 150 (UNIT UNKNOWN), QD
     Route: 048
     Dates: start: 20150506
  4. STELARA [Concomitant]
     Active Substance: USTEKINUMAB
     Dosage: 90 MG, EVERY 8 WEEKS
     Route: 058
     Dates: start: 20171129
  5. BLINDED BRAZIKUMAB 300MG (TBD) [Suspect]
     Active Substance: BRAZIKUMAB
     Indication: CROHN^S DISEASE
     Dosage: UNK
     Dates: start: 20170322, end: 20170905
  6. BLINDED BRAZIKUMAB 700MG (TBD) [Suspect]
     Active Substance: BRAZIKUMAB
     Indication: CROHN^S DISEASE
     Dosage: UNK
     Dates: start: 20170322, end: 20170905
  7. BLINDED PLACEBO [Suspect]
     Active Substance: INVESTIGATIONAL PRODUCT
     Indication: CROHN^S DISEASE
     Dosage: UNK
     Dates: start: 20170322, end: 20170905
  8. STELARA [Concomitant]
     Active Substance: USTEKINUMAB
     Indication: CROHN^S DISEASE
     Dosage: 390 MG, SINGLE
     Route: 042
     Dates: start: 20171006, end: 20171006
  9. BLINDED BRAZIKUMAB 40MG (TBD) [Suspect]
     Active Substance: BRAZIKUMAB
     Indication: CROHN^S DISEASE
     Dosage: UNK
     Dates: start: 20170322, end: 20170905
  10. BLINDED BRAZIKUMAB 80MG (TBD) [Suspect]
     Active Substance: BRAZIKUMAB
     Indication: CROHN^S DISEASE
     Dosage: UNK
     Dates: start: 20170322, end: 20170905

REACTIONS (1)
  - Vision blurred [Recovered/Resolved]

NARRATIVE: CASE EVENT DATE: 20171013
